FAERS Safety Report 9400024 (Version 1)
Quarter: 2013Q3

REPORT INFORMATION
  Report Type: Spontaneous
  Country: US (occurrence: US)
  Receive Date: 20130715
  Receipt Date: 20130715
  Transmission Date: 20140515
  Serious: Yes (Other)
  Sender: FDA-Public Use
  Company Number: US-PFIZER INC-2013206449

PATIENT
  Age: 33 Year
  Sex: Female
  Weight: 68.93 kg

DRUGS (6)
  1. NEURONTIN [Suspect]
     Indication: NERVE INJURY
     Dosage: 200 MG, UNK
     Dates: start: 2000
  2. NEURONTIN [Suspect]
     Indication: NEUROPATHY PERIPHERAL
     Dosage: 800 MG, 3X/DAY
  3. LEXAPRO [Concomitant]
     Indication: DEPRESSION
     Dosage: 25 MG/DAY
  4. LORTAB [Concomitant]
     Indication: PAIN
     Dosage: 20 MG, 3X/DAY
  5. ZANAFLEX [Concomitant]
     Indication: MUSCLE SPASMS
     Dosage: 4 MG, 3X/DAY
  6. VALIUM [Concomitant]
     Dosage: 10 MG, 4X/DAY

REACTIONS (1)
  - Back disorder [Unknown]
